FAERS Safety Report 18702154 (Version 1)
Quarter: 2021Q1

REPORT INFORMATION
  Report Type: Spontaneous
  Country: US (occurrence: US)
  Receive Date: 20210105
  Receipt Date: 20210105
  Transmission Date: 20210419
  Serious: Yes (Hospitalization)
  Sender: FDA-Public Use
  Company Number: US-STRIDES ARCOLAB LIMITED-2021SP000145

PATIENT
  Age: 76 Year
  Sex: Male

DRUGS (1)
  1. PREDNISOLONE. [Suspect]
     Active Substance: PREDNISOLONE
     Indication: BACK PAIN
     Dosage: AT TAPERING DOSE
     Route: 065

REACTIONS (3)
  - Strongyloidiasis [Recovered/Resolved]
  - Jejunal stenosis [Recovered/Resolved]
  - Duodenal stenosis [Recovered/Resolved]
